FAERS Safety Report 23048945 (Version 1)
Quarter: 2023Q4

REPORT INFORMATION
  Report Type: Spontaneous
  Country: IT (occurrence: IT)
  Receive Date: 20231010
  Receipt Date: 20231010
  Transmission Date: 20240110
  Serious: Yes (Other)
  Sender: FDA-Public Use
  Company Number: None

PATIENT
  Age: 58 Year
  Sex: Female

DRUGS (2)
  1. LETROZOLE [Suspect]
     Active Substance: LETROZOLE
     Indication: Metaplastic breast carcinoma
     Dates: start: 20230529, end: 20230612
  2. RIBOCICLIB [Suspect]
     Active Substance: RIBOCICLIB
     Indication: Metaplastic breast carcinoma
     Dosage: 600 MG DAILY
     Dates: start: 20230529, end: 20230612

REACTIONS (1)
  - Pancytopenia [Recovered/Resolved]

NARRATIVE: CASE EVENT DATE: 20230612
